FAERS Safety Report 9871365 (Version 1)
Quarter: 2014Q1

REPORT INFORMATION
  Report Type: Report from Study
  Country: AR (occurrence: AR)
  Receive Date: 20140205
  Receipt Date: 20140205
  Transmission Date: 20141002
  Serious: Yes (Other)
  Sender: FDA-Public Use
  Company Number: PHHY2014AR014117

PATIENT
  Age: 75 Year
  Sex: Male

DRUGS (2)
  1. DIOVAN D [Suspect]
     Indication: HYPERTENSION
     Dosage: 1 DF (320/12.5 MG), PER DAY
     Route: 048
     Dates: end: 201401
  2. DIOVAN D [Suspect]
     Dosage: 1 DF (320/25 MG), PER DAY
     Route: 048
     Dates: start: 201401

REACTIONS (1)
  - Coronary artery occlusion [Recovered/Resolved]
